FAERS Safety Report 7367002-7 (Version None)
Quarter: 2011Q1

REPORT INFORMATION
  Report Type: 
  Country: None (occurrence: None)
  Receive Date: 20110322
  Receipt Date: 20110316
  Transmission Date: 20110831
  Serious: No
  Sender: FDA-Public Use
  Company Number: US-PFIZER INC-2011059063

PATIENT
  Sex: Female

DRUGS (1)
  1. ZOLOFT [Suspect]
     Dosage: 25 MG, UNK

REACTIONS (4)
  - SEDATION [None]
  - HYPOAESTHESIA [None]
  - THINKING ABNORMAL [None]
  - MALAISE [None]
